FAERS Safety Report 8215375-5 (Version None)
Quarter: 2012Q1

REPORT INFORMATION
  Report Type: 
  Country: None (occurrence: None)
  Receive Date: 20120316
  Receipt Date: 20120312
  Transmission Date: 20120608
  Serious: Yes (Death, Hospitalization)
  Sender: FDA-Public Use
  Company Number: US-CELGENEUS-163-21880-12023102

PATIENT
  Sex: Male

DRUGS (15)
  1. LASIX [Concomitant]
     Route: 065
  2. K-TAB [Concomitant]
     Route: 065
  3. PRILOSEC [Concomitant]
     Route: 065
  4. ZESTRIL [Concomitant]
     Route: 065
  5. REVLIMID [Suspect]
     Indication: AMYLOIDOSIS
     Dosage: 5 MILLIGRAM
     Route: 048
     Dates: start: 20120217
  6. HYTRIN [Concomitant]
     Route: 065
  7. COUMADIN [Concomitant]
     Route: 065
  8. DECADRON [Concomitant]
     Dosage: 40 MILLIGRAM
     Route: 065
     Dates: start: 20120217
  9. NOVOLIN 70/30 [Concomitant]
     Route: 065
  10. ZOCOR [Concomitant]
     Route: 065
  11. TENORMIN [Concomitant]
     Route: 065
  12. TYLENOL W/ CODEINE NO. 3 [Concomitant]
     Route: 065
  13. RESTORIL [Concomitant]
     Route: 065
  14. PROCARDIA [Concomitant]
     Route: 065
  15. REGLAN [Concomitant]
     Route: 065

REACTIONS (1)
  - CARDIAC ARREST [None]
